FAERS Safety Report 5272320-2 (Version None)
Quarter: 2007Q1

REPORT INFORMATION
  Report Type: 
  Country: None (occurrence: None)
  Receive Date: 20070320
  Receipt Date: 20070320
  Transmission Date: 20070707
  Serious: Yes (Other)
  Sender: FDA-Public Use
  Company Number: None

PATIENT
  Age: 8 Year
  Sex: Male
  Weight: 22.6799 kg

DRUGS (2)
  1. STRATTERA [Suspect]
     Indication: ATTENTION DEFICIT/HYPERACTIVITY DISORDER
     Dosage: 18MG 1 DAILY FOR 4 DAYS PO
     Route: 048
     Dates: start: 20070219, end: 20070222
  2. STRATTERA [Suspect]
     Indication: ATTENTION DEFICIT/HYPERACTIVITY DISORDER
     Dosage: 25MG 1DAILY THERE AFTER PO
     Route: 048
     Dates: start: 20070223, end: 20070226

REACTIONS (1)
  - HEART RATE INCREASED [None]
